FAERS Safety Report 16987378 (Version 1)
Quarter: 2019Q4

REPORT INFORMATION
  Report Type: Spontaneous
  Country: US (occurrence: US)
  Receive Date: 20191102
  Receipt Date: 20191102
  Transmission Date: 20200122
  Serious: Yes (Hospitalization)
  Sender: FDA-Public Use
  Company Number: US-ZYDUS-042688

PATIENT
  Age: 58 Year
  Sex: Female

DRUGS (4)
  1. GABAPENTIN. [Concomitant]
     Active Substance: GABAPENTIN
     Indication: PAIN
     Route: 065
  2. DULOXETINE/DULOXETINE HYDROCHLORIDE [Suspect]
     Active Substance: DULOXETINE HYDROCHLORIDE
     Indication: PAIN
     Route: 065
  3. CYCLOBENZAPRINE. [Interacting]
     Active Substance: CYCLOBENZAPRINE
     Indication: PAIN
     Route: 065
  4. BUPRENORPHINE/NALOXONE [Interacting]
     Active Substance: BUPRENORPHINE\NALOXONE
     Indication: PAIN
     Route: 065

REACTIONS (10)
  - Serotonin syndrome [Unknown]
  - Confusional state [Recovered/Resolved]
  - Muscle rigidity [Unknown]
  - Hyperreflexia [Unknown]
  - Drug interaction [Unknown]
  - Agitation [Unknown]
  - Hyperhidrosis [Unknown]
  - Clonus [Unknown]
  - Tachycardia [Unknown]
  - Mydriasis [Unknown]
